FAERS Safety Report 10520022 (Version 2)
Quarter: 2015Q1

REPORT INFORMATION
  Report Type: Spontaneous
  Country: US (occurrence: US)
  Receive Date: 20141015
  Receipt Date: 20150326
  Transmission Date: 20150720
  Serious: Yes (Other)
  Sender: FDA-Public Use
  Company Number: US-BAYER-2014-149806

PATIENT
  Age: 40 Year
  Sex: Female
  Weight: 99.77 kg

DRUGS (12)
  1. YASMIN [Suspect]
     Active Substance: DROSPIRENONE\ETHINYL ESTRADIOL
     Indication: GASTROOESOPHAGEAL REFLUX DISEASE
  2. IRON [IRON] [Concomitant]
     Indication: ANAEMIA
     Dosage: 65 MG, 1 PILL
  3. YASMIN [Suspect]
     Active Substance: DROSPIRENONE\ETHINYL ESTRADIOL
     Indication: POLYCYSTIC OVARIES
     Dosage: 28 DAY PACK, 1 DAILY
     Dates: start: 201110
  4. PROTONIX [Concomitant]
     Active Substance: PANTOPRAZOLE SODIUM
     Indication: MENTAL DISORDER
     Dosage: 40 MG, QD
  5. WELLBUTRIN [Concomitant]
     Active Substance: BUPROPION HYDROCHLORIDE
     Indication: MENTAL DISORDER
  6. VYTORIN [Concomitant]
     Active Substance: EZETIMIBE\SIMVASTATIN
     Indication: BLOOD CHOLESTEROL INCREASED
     Dosage: 10 MG, QD
     Dates: start: 20150310
  7. WELLBUTRIN [Concomitant]
     Active Substance: BUPROPION HYDROCHLORIDE
     Indication: POLYCYSTIC OVARIES
     Dosage: 200 HCL SR, 2 TABS DAILY
  8. SEROQUEL [Concomitant]
     Active Substance: QUETIAPINE FUMARATE
     Indication: MENTAL DISORDER
     Dosage: 50 MG, 137 MG DAILY
     Dates: start: 20150310
  9. SYNTHROID [Concomitant]
     Active Substance: LEVOTHYROXINE SODIUM
     Indication: BLOOD THYROID STIMULATING HORMONE DECREASED
     Dosage: 112 MG, QD
     Dates: start: 20150310
  10. FAMOTIDINE. [Concomitant]
     Active Substance: FAMOTIDINE
     Indication: GASTROOESOPHAGEAL REFLUX DISEASE
     Dosage: 40 MG, 1 PILL
  11. ZYPREXA [Concomitant]
     Active Substance: OLANZAPINE
     Dosage: 10 MG, QD
  12. OCELLA [Suspect]
     Active Substance: DROSPIRENONE\ETHINYL ESTRADIOL
     Indication: POLYCYSTIC OVARIES

REACTIONS (7)
  - Mood altered [Not Recovered/Not Resolved]
  - Coeliac disease [None]
  - Lactose intolerance [None]
  - Flatulence [Recovered/Resolved]
  - Flatulence [Recovered/Resolved]
  - Product use issue [None]
  - Anaemia [Recovering/Resolving]
